FAERS Safety Report 8050611-X (Version None)
Quarter: 2012Q1

REPORT INFORMATION
  Report Type: 
  Country: None (occurrence: None)
  Receive Date: 20120117
  Receipt Date: 20120117
  Transmission Date: 20120608
  Serious: Yes (Hospitalization)
  Sender: FDA-Public Use
  Company Number: None

PATIENT
  Sex: Female
  Weight: 52.9 kg

DRUGS (1)
  1. ACTEMRA [Suspect]
     Dosage: 600MG
     Route: 042

REACTIONS (5)
  - HEART RATE INCREASED [None]
  - FLUSHING [None]
  - BREATH SOUNDS ABSENT [None]
  - ERYTHEMA [None]
  - RESPIRATORY DISTRESS [None]
